FAERS Safety Report 11742879 (Version 3)
Quarter: 2015Q4

REPORT INFORMATION
  Report Type: Spontaneous
  Country: US (occurrence: US)
  Receive Date: 20151116
  Receipt Date: 20151218
  Transmission Date: 20160304
  Serious: Yes (Other)
  Sender: FDA-Public Use
  Company Number: US-BAYER-2015-465311

PATIENT
  Age: 41 Year
  Sex: Female
  Weight: 73.16 kg

DRUGS (4)
  1. ORTHO CYCLEN [Concomitant]
     Active Substance: ETHINYL ESTRADIOL\NORGESTIMATE
     Dosage: 1 DF, QD
  2. METROLOTION [Concomitant]
     Active Substance: METRONIDAZOLE
     Dosage: UNK, BID
  3. MIRENA [Suspect]
     Active Substance: LEVONORGESTREL
     Indication: CONTRACEPTION
     Dosage: 20 MCG/24HR, CONT
     Route: 015
     Dates: start: 20151106, end: 20151106
  4. OMEPRAZOLE. [Concomitant]
     Active Substance: OMEPRAZOLE
     Dosage: 40 MG, QD
     Route: 048

REACTIONS (6)
  - Procedural pain [Recovered/Resolved]
  - Abdominal pain lower [None]
  - Device difficult to use [None]
  - Device deployment issue [None]
  - Frustration [None]
  - Procedural haemorrhage [Recovered/Resolved]

NARRATIVE: CASE EVENT DATE: 20151106
